FAERS Safety Report 15125511 (Version 1)
Quarter: 2018Q3

REPORT INFORMATION
  Report Type: Spontaneous
  Country: US (occurrence: US)
  Receive Date: 20180710
  Receipt Date: 20180710
  Transmission Date: 20181010
  Serious: Yes (Hospitalization)
  Sender: FDA-Public Use
  Company Number: US-MIKART-2018PRN00343

PATIENT
  Age: 70 Year
  Sex: Female
  Weight: 83.9 kg

DRUGS (16)
  1. PF?06425090/PLACEBO (BLINDED) [Suspect]
     Active Substance: INVESTIGATIONAL PRODUCT
     Dosage: UNK
     Route: 030
     Dates: start: 20171215, end: 20171215
  2. ALBUTEROL W/ IPRATROPIUM [Concomitant]
     Active Substance: ALBUTEROL\IPRATROPIUM
     Dosage: UNK
     Dates: start: 20171217
  3. ASPIRIN. [Concomitant]
     Active Substance: ASPIRIN
     Dosage: UNK
     Dates: start: 20170706
  4. ACETAMINOPHEN. [Concomitant]
     Active Substance: ACETAMINOPHEN
     Dosage: UNK
     Dates: start: 20171122
  5. CYCLOBENZAPRINE. [Concomitant]
     Active Substance: CYCLOBENZAPRINE
     Dosage: UNK
     Dates: start: 20180128
  6. PF?06425090/PLACEBO (BLINDED) [Suspect]
     Active Substance: INVESTIGATIONAL PRODUCT
     Indication: INFECTION PROPHYLAXIS
     Dosage: UNK
     Route: 030
     Dates: start: 20171109, end: 20171109
  7. CARVEDILOL. [Concomitant]
     Active Substance: CARVEDILOL
     Dosage: UNK
     Dates: start: 20171215
  8. FUROSEMIDE. [Concomitant]
     Active Substance: FUROSEMIDE
     Dosage: UNK
     Dates: start: 20180223, end: 20180311
  9. ALBUTEROL. [Concomitant]
     Active Substance: ALBUTEROL
     Dosage: UNK
     Dates: start: 20171122
  10. GABAPENTIN. [Concomitant]
     Active Substance: GABAPENTIN
     Dosage: UNK
     Dates: start: 20171229
  11. RANITIDINE. [Concomitant]
     Active Substance: RANITIDINE
     Dosage: UNK
     Dates: start: 20170211
  12. VALSARTAN. [Concomitant]
     Active Substance: VALSARTAN
     Dosage: UNK
     Dates: start: 20170809
  13. AMITRIPTYLINE [Concomitant]
     Active Substance: AMITRIPTYLINE
     Dosage: UNK
     Dates: start: 20180102
  14. AMLODIPINE [Concomitant]
     Active Substance: AMLODIPINE BESYLATE
     Dosage: UNK
     Dates: start: 20170720
  15. HYDROCODONE BITARTRATE AND ACETAMINOPHEN [Suspect]
     Active Substance: ACETAMINOPHEN\HYDROCODONE BITARTRATE
     Indication: BACK PAIN
     Dosage: 1 TABLETS, EVERY 12 HOURS AS NEEDED
     Route: 048
     Dates: start: 20180305, end: 20180409
  16. ALPRAZOLAM. [Concomitant]
     Active Substance: ALPRAZOLAM
     Dosage: UNK
     Dates: start: 20180202

REACTIONS (8)
  - Hypoxia [None]
  - Encephalopathy [Recovered/Resolved]
  - Stupor [Unknown]
  - Sedation complication [Unknown]
  - Troponin increased [Unknown]
  - Acute kidney injury [Recovered/Resolved]
  - Hallucination [None]
  - Dehydration [Unknown]

NARRATIVE: CASE EVENT DATE: 201803
